FAERS Safety Report 5352477-5 (Version None)
Quarter: 2007Q2

REPORT INFORMATION
  Report Type: 
  Country: None (occurrence: None)
  Receive Date: 20070611
  Receipt Date: 20070608
  Transmission Date: 20071010
  Serious: Yes (Hospitalization)
  Sender: FDA-Public Use
  Company Number: B0472609A

PATIENT
  Age: 34 Year
  Sex: Male
  Weight: 60 kg

DRUGS (15)
  1. AUGMENTIN '125' [Suspect]
     Dosage: 2G THREE TIMES PER DAY
     Route: 065
     Dates: start: 20070326, end: 20070329
  2. TRAMADOL HYDROCHLORIDE AND ACETAMINOPHEN [Suspect]
     Indication: GROIN PAIN
     Dosage: 1TAB FOUR TIMES PER DAY
     Route: 048
     Dates: start: 20070307
  3. OXACILLIN [Suspect]
     Dosage: 1.5G FOUR TIMES PER DAY
     Route: 042
     Dates: start: 20070330
  4. GENTAMICIN [Concomitant]
     Dosage: 210MG PER DAY
     Route: 042
     Dates: start: 20070326, end: 20070331
  5. PERFALGAN [Concomitant]
     Dosage: 1G PER DAY
     Route: 065
     Dates: start: 20070327, end: 20070327
  6. LYRICA [Concomitant]
     Dosage: 150MG PER DAY
     Route: 048
     Dates: start: 20070307
  7. ACTISKENAN [Concomitant]
     Dosage: 30MG TWICE PER DAY
     Dates: start: 20070324, end: 20070328
  8. SKENAN [Concomitant]
     Dosage: 30MG TWICE PER DAY
     Dates: start: 20070324, end: 20070328
  9. ACUPAN [Concomitant]
     Indication: GROIN PAIN
     Dates: start: 20070329, end: 20070329
  10. IMOVANE [Concomitant]
     Dosage: 3.75MG PER DAY
     Dates: start: 20070327, end: 20070403
  11. BACTRIM DS [Concomitant]
     Dosage: 1TAB PER DAY
     Route: 048
  12. TRIFLUCAN [Concomitant]
  13. KIVEXA [Concomitant]
     Dates: start: 20070321
  14. NORVIR [Concomitant]
     Dates: start: 20070321
  15. REYATAZ [Concomitant]
     Dates: start: 20070321

REACTIONS (3)
  - HEPATITIS ACUTE [None]
  - HEPATOMEGALY [None]
  - TRANSAMINASES INCREASED [None]
